FAERS Safety Report 25459005 (Version 1)
Quarter: 2025Q2

REPORT INFORMATION
  Report Type: Spontaneous
  Country: CA (occurrence: CA)
  Receive Date: 20250620
  Receipt Date: 20250620
  Transmission Date: 20250717
  Serious: Yes (Death)
  Sender: CHEPLAPHARM
  Company Number: CA-CHEPLA-2025007453

PATIENT
  Age: 49 Year
  Sex: Male

DRUGS (1)
  1. CAPECITABINE [Suspect]
     Active Substance: CAPECITABINE
     Indication: Nasopharyngeal cancer
     Route: 048

REACTIONS (8)
  - Acute respiratory distress syndrome [Fatal]
  - Hypoxia [Fatal]
  - Mucosal inflammation [Fatal]
  - Neutrophil count decreased [Fatal]
  - Platelet count decreased [Fatal]
  - Pneumonia aspiration [Fatal]
  - Pyrexia [Fatal]
  - Off label use [Recovered/Resolved]
